FAERS Safety Report 6045518-3 (Version None)
Quarter: 2009Q1

REPORT INFORMATION
  Report Type: 
  Country: None (occurrence: None)
  Receive Date: 20090121
  Receipt Date: 20090116
  Transmission Date: 20090719
  Serious: Yes (Hospitalization)
  Sender: FDA-Public Use
  Company Number: A0764359A

PATIENT
  Age: 62 Year
  Sex: Female
  Weight: 72.7 kg

DRUGS (2)
  1. AVANDIA [Suspect]
     Dosage: 4MG PER DAY
     Route: 048
     Dates: start: 20060601, end: 20070401
  2. ZOCOR [Concomitant]

REACTIONS (1)
  - MYOCARDIAL INFARCTION [None]
